FAERS Safety Report 8927008 (Version 1)
Quarter: 2012Q4

REPORT INFORMATION
  Report Type: 
  Country: DE (occurrence: DE)
  Receive Date: 20121127
  Receipt Date: 20121127
  Transmission Date: 20130627
  Serious: Yes (Hospitalization, Other)
  Sender: FDA-Public Use
  Company Number: DE-PFIZER INC-2012293383

PATIENT
  Age: 53 Year
  Sex: Female
  Weight: 86 kg

DRUGS (9)
  1. GENOTROPIN [Suspect]
     Dosage: 0.8 mg, 1x/day, 7 injections/week
     Route: 058
     Dates: start: 20010301
  2. ETHINYLESTRADIOL [Concomitant]
     Indication: LUTEINIZING HORMONE DEFICIENCY
     Dosage: UNK
     Dates: start: 19990316
  3. ETHINYLESTRADIOL [Concomitant]
     Indication: FOLLICLE-STIMULATING HORMONE DEFICIENCY
  4. ETHINYLESTRADIOL [Concomitant]
     Indication: OVARIAN DISORDER
  5. ETHINYLESTRADIOL [Concomitant]
     Indication: HYPOGONADISM
  6. BENOSID [Concomitant]
     Indication: REGIONAL ENTERITIS OF UNSPECIFIED SITE
     Dosage: UNK
     Dates: start: 19981016
  7. SALOFALK /OLD FORM/ [Concomitant]
     Indication: REGIONAL ENTERITIS OF UNSPECIFIED SITE
     Dosage: UNK
     Dates: start: 19981016
  8. VITAMIN D [Concomitant]
     Indication: OSTEOPENIA
     Dosage: UNK
     Dates: start: 19970527
  9. BUDESONIDE [Concomitant]
     Indication: REGIONAL ENTERITIS OF UNSPECIFIED SITE
     Dosage: UNK
     Dates: start: 19961101

REACTIONS (1)
  - Meniere^s disease [Unknown]
